FAERS Safety Report 14974149 (Version 1)
Quarter: 2018Q2

REPORT INFORMATION
  Report Type: Spontaneous
  Country: US (occurrence: US)
  Receive Date: 20180514
  Receipt Date: 20180514
  Transmission Date: 20180711
  Serious: Yes (Disabling)
  Sender: FDA-Public Use
  Company Number: None

PATIENT
  Age: 67 Year
  Sex: Female
  Weight: 53.1 kg

DRUGS (10)
  1. VALIUM (FOR BENZO TAPER) [Concomitant]
  2. CO-Q10 [Concomitant]
  3. RAMIPRIL. [Concomitant]
     Active Substance: RAMIPRIL
  4. CURCUMIN [Concomitant]
     Active Substance: CURCUMIN
  5. MAGNESIUM MALATE [Concomitant]
  6. TEMAZEPAM. [Concomitant]
     Active Substance: TEMAZEPAM
     Indication: INSOMNIA
     Dosage: ?          QUANTITY:1 CAPSULE(S);?
     Route: 048
  7. BABY ASPIRIN [Concomitant]
     Active Substance: ASPIRIN
  8. VITAMIN A [Concomitant]
     Active Substance: VITAMIN A
  9. PROBIOTICS [Concomitant]
     Active Substance: PROBIOTICS NOS
  10. FISH OIL [Concomitant]
     Active Substance: FISH OIL

REACTIONS (18)
  - Palpitations [None]
  - Neuralgia [None]
  - Myalgia [None]
  - Alopecia [None]
  - Cognitive disorder [None]
  - Gastrointestinal disorder [None]
  - Chronic fatigue syndrome [None]
  - Dizziness [None]
  - Tinnitus [None]
  - Fatigue [None]
  - Asthenia [None]
  - Visual impairment [None]
  - Post viral fatigue syndrome [None]
  - Gait disturbance [None]
  - Bone pain [None]
  - Withdrawal syndrome [None]
  - Amnesia [None]
  - Feeling abnormal [None]

NARRATIVE: CASE EVENT DATE: 20120620
